FAERS Safety Report 23230469 (Version 2)
Quarter: 2024Q3

REPORT INFORMATION
  Report Type: Report from Study
  Country: GB (occurrence: GB)
  Receive Date: 20231127
  Receipt Date: 20240926
  Transmission Date: 20241016
  Serious: Yes (Hospitalization, Other)
  Sender: SANDOZ
  Company Number: GB-002147023-NVSC2021GB293206

PATIENT
  Age: 76 Year
  Sex: Female

DRUGS (2)
  1. HYRIMOZ [Suspect]
     Active Substance: ADALIMUMAB-ADAZ
     Dosage: 40 MG EOW (40 MG/0.4 ML)
     Route: 058
  2. HYRIMOZ [Suspect]
     Active Substance: ADALIMUMAB-ADAZ
     Indication: Rheumatoid arthritis
     Dosage: 40 MG, Q2W (40 MG/0.8 ML)
     Route: 058
     Dates: start: 20191211

REACTIONS (8)
  - Sepsis [Unknown]
  - COVID-19 [Unknown]
  - Osteomyelitis [Unknown]
  - Pain [Unknown]
  - Ligament sprain [Unknown]
  - Tooth disorder [Unknown]
  - Fall [Unknown]
  - Movement disorder [Unknown]

NARRATIVE: CASE EVENT DATE: 20231001
